FAERS Safety Report 17647841 (Version 2)
Quarter: 2020Q4

REPORT INFORMATION
  Report Type: Spontaneous
  Country: JP (occurrence: JP)
  Receive Date: 20200408
  Receipt Date: 20201016
  Transmission Date: 20210113
  Serious: Yes (Death, Other)
  Sender: FDA-Public Use
  Company Number: NVSC2020JP094857

PATIENT
  Age: 69 Year
  Sex: Female

DRUGS (1)
  1. VOTRIENT [Suspect]
     Active Substance: PAZOPANIB HYDROCHLORIDE
     Indication: METASTATIC RENAL CELL CARCINOMA
     Dosage: 800 MG, QD
     Route: 048
     Dates: start: 201902

REACTIONS (9)
  - Nausea [Fatal]
  - Hypocalcaemia [Fatal]
  - Acute kidney injury [Fatal]
  - Hyperphosphataemia [Fatal]
  - Disseminated intravascular coagulation [Fatal]
  - Tumour lysis syndrome [Fatal]
  - Fatigue [Fatal]
  - Diarrhoea [Fatal]
  - Hyperuricaemia [Fatal]
